FAERS Safety Report 13135165 (Version 3)
Quarter: 2017Q1

REPORT INFORMATION
  Report Type: Spontaneous
  Country: US (occurrence: US)
  Receive Date: 20170120
  Receipt Date: 20170328
  Transmission Date: 20170428
  Serious: Yes (Hospitalization, Other)
  Sender: FDA-Public Use
  Company Number: US-BRACCO-014333

PATIENT
  Age: 86 Year
  Sex: Female

DRUGS (1)
  1. ISOVUE 370 [Suspect]
     Active Substance: IOPAMIDOL
     Indication: ARTERIOGRAM CORONARY
     Route: 042
     Dates: start: 20170117, end: 20170117

REACTIONS (5)
  - Rib fracture [Recovering/Resolving]
  - Dyspnoea [Recovering/Resolving]
  - Cardio-respiratory arrest [Recovered/Resolved]
  - Pneumothorax [Recovering/Resolving]
  - Respiratory distress [Recovering/Resolving]

NARRATIVE: CASE EVENT DATE: 20170117
